FAERS Safety Report 7151965-9 (Version None)
Quarter: 2010Q4

REPORT INFORMATION
  Report Type: 
  Country: None (occurrence: None)
  Receive Date: 20101210
  Receipt Date: 20101207
  Transmission Date: 20110411
  Serious: Yes (Hospitalization)
  Sender: FDA-Public Use
  Company Number: US-AMGEN-QUU431796

PATIENT

DRUGS (3)
  1. NPLATE [Suspect]
     Indication: IDIOPATHIC THROMBOCYTOPENIC PURPURA
     Dosage: UNK UNK, UNK
  2. NPLATE [Suspect]
     Dates: start: 20090101
  3. IMMUNE GLOBULIN NOS [Concomitant]
     Dosage: UNK
     Dates: start: 20000901

REACTIONS (6)
  - EPISTAXIS [None]
  - NERVOUSNESS [None]
  - PLATELET COUNT INCREASED [None]
  - SEPSIS [None]
  - STAPHYLOCOCCAL INFECTION [None]
  - WALKING AID USER [None]
